FAERS Safety Report 5593412-4 (Version None)
Quarter: 2008Q1

REPORT INFORMATION
  Report Type: 
  Country: None (occurrence: None)
  Receive Date: 20080116
  Receipt Date: 20080102
  Transmission Date: 20080703
  Serious: Yes (Other)
  Sender: FDA-Public Use
  Company Number: GB-BRISTOL-MYERS SQUIBB COMPANY-14032551

PATIENT
  Age: 69 Year
  Sex: Male

DRUGS (3)
  1. CARBIDOPA + LEVODOPA [Suspect]
     Indication: PARKINSON'S DISEASE
     Dosage: 1 DOSAGE FORM = 1 TABLET
     Route: 048
     Dates: start: 20071003, end: 20071124
  2. ETORICOXIB [Concomitant]
  3. TOLTERODINE TARTRATE [Concomitant]

REACTIONS (1)
  - POLYMYALGIA RHEUMATICA [None]
